FAERS Safety Report 7730406-4 (Version None)
Quarter: 2011Q3

REPORT INFORMATION
  Report Type: 
  Country: None (occurrence: None)
  Receive Date: 20110906
  Receipt Date: 20110829
  Transmission Date: 20111222
  Serious: Yes (Hospitalization, Other)
  Sender: FDA-Public Use
  Company Number: DK-BAYER-2011-078275

PATIENT
  Sex: Female

DRUGS (1)
  1. MIRENA [Suspect]
     Indication: MENORRHAGIA
     Dosage: UNK
     Route: 015
     Dates: start: 20110413

REACTIONS (4)
  - OVARIAN CYST [None]
  - UTERINE LEIOMYOMA [None]
  - DEVICE EXPULSION [None]
  - VAGINAL HAEMORRHAGE [None]
